FAERS Safety Report 4497792-2 (Version None)
Quarter: 2004Q4

REPORT INFORMATION
  Report Type: 
  Country: None (occurrence: None)
  Receive Date: 20041104
  Receipt Date: 20041025
  Transmission Date: 20050328
  Serious: Yes (Death, Other)
  Sender: FDA-Public Use
  Company Number: 2004US001293

PATIENT
  Age: 37 Year
  Sex: Male

DRUGS (8)
  1. AMBISOME [Suspect]
     Indication: CAVERNOUS SINUS THROMBOSIS
     Dosage: 5.00 MG/KG, UID,QD, INTRAVENOUS
     Route: 042
  2. HEPARIN [Concomitant]
  3. TOBRAMYCIN [Concomitant]
  4. METHOTREXATE [Concomitant]
  5. CYCLOPHOSPHAMIDE [Concomitant]
  6. TAZOCIN (PIPERACILLIN SODIUM, TAZOBACTAM SODIUM) [Concomitant]
  7. ANTIBIOTICS [Concomitant]
  8. TPN        (NICOTINAMIDE, TYROSINE) [Concomitant]

REACTIONS (8)
  - CAROTID ARTERY THROMBOSIS [None]
  - CEREBRAL ASPERGILLOSIS [None]
  - CONFUSIONAL STATE [None]
  - GENERAL PHYSICAL HEALTH DETERIORATION [None]
  - GRAFT VERSUS HOST DISEASE [None]
  - HAEMATOMA [None]
  - RENAL IMPAIRMENT [None]
  - RESTLESSNESS [None]
